FAERS Safety Report 5771322-7 (Version None)
Quarter: 2008Q2

REPORT INFORMATION
  Report Type: 
  Country: None (occurrence: None)
  Receive Date: 20080613
  Receipt Date: 20080610
  Transmission Date: 20081010
  Serious: Yes (Other)
  Sender: FDA-Public Use
  Company Number: US-WYE-H02661608

PATIENT
  Sex: Female
  Weight: 49.9 kg

DRUGS (10)
  1. HCV-796 [Suspect]
     Indication: HEPATITIS C
     Route: 048
     Dates: start: 20070413, end: 20070809
  2. REBETOL [Suspect]
     Indication: HEPATITIS C
     Route: 048
     Dates: start: 20070413, end: 20080320
  3. GLYBURIDE [Concomitant]
     Indication: DIABETES MELLITUS
     Route: 048
     Dates: start: 20070416
  4. PIROXICAM [Concomitant]
     Indication: NERVE COMPRESSION
     Dosage: 20 MG EVERY 1 PRN
     Route: 048
     Dates: start: 20070209
  5. TYLENOL EXTRA STRENGTH [Concomitant]
     Indication: INFLUENZA
     Dosage: 1000 MG EVERY 1 PRN
     Route: 048
     Dates: start: 20070414
  6. TIMOLOL MALEATE [Concomitant]
     Indication: GLAUCOMA
     Route: 047
     Dates: start: 19980101
  7. LUMIGAN [Concomitant]
     Indication: GLAUCOMA
     Dosage: 0.03 % AT HOUR OF SLEEP
     Route: 047
     Dates: start: 19980101
  8. ALPHAGAN [Concomitant]
     Indication: GLAUCOMA
     Dosage: 0.15% 4 TIMES PER DAY
     Route: 047
     Dates: start: 19980101
  9. PEG-INTRON [Suspect]
     Indication: HEPATITIS C
     Route: 058
     Dates: start: 20070413, end: 20080313
  10. METFORMIN HCL [Concomitant]
     Indication: DIABETES MELLITUS
     Route: 048
     Dates: start: 20070416

REACTIONS (1)
  - ALANINE AMINOTRANSFERASE INCREASED [None]
